FAERS Safety Report 6248897-7 (Version None)
Quarter: 2009Q2

REPORT INFORMATION
  Report Type: 
  Country: None (occurrence: None)
  Receive Date: 20090629
  Receipt Date: 20090617
  Transmission Date: 20091009
  Serious: Yes (Death)
  Sender: FDA-Public Use
  Company Number: BE-PFIZER INC-2009228634

PATIENT

DRUGS (4)
  1. SOMATROPIN [Suspect]
     Indication: GROWTH HORMONE DEFICIENCY
     Dosage: 0.2 MG, 1X/DAY
     Route: 058
     Dates: start: 19980723, end: 20070427
  2. MINIRIN ^AVENTIS PHARMA^ [Concomitant]
     Dosage: 0.1 ML, 2X/DAY
     Route: 045
     Dates: start: 19961001
  3. HYDROCORTISONE [Concomitant]
     Dosage: 10 MG, 2X/DAY
     Route: 048
     Dates: start: 19961004
  4. CARBAMAZEPINE [Concomitant]
     Dosage: 400 MG, 2X/DAY
     Route: 048
     Dates: start: 20001212

REACTIONS (1)
  - DEATH [None]
